FAERS Safety Report 25475169 (Version 2)
Quarter: 2025Q3

REPORT INFORMATION
  Report Type: Report from Study
  Country: US (occurrence: US)
  Receive Date: 20250624
  Receipt Date: 20250829
  Transmission Date: 20251021
  Serious: Yes (Other)
  Sender: ABBVIE
  Company Number: US-ABBVIE-6337247

PATIENT
  Age: 36 Year
  Sex: Female

DRUGS (3)
  1. SKYRIZI [Suspect]
     Active Substance: RISANKIZUMAB-RZAA
     Indication: Psoriasis
     Route: 058
     Dates: start: 2024
  2. SKYRIZI [Suspect]
     Active Substance: RISANKIZUMAB-RZAA
     Indication: Psoriatic arthropathy
     Dosage: STRENGTH: 150MG/ML
     Route: 058
     Dates: start: 202504
  3. SKYRIZI [Suspect]
     Active Substance: RISANKIZUMAB-RZAA
     Route: 058

REACTIONS (7)
  - Seizure [Unknown]
  - Muscle rupture [Unknown]
  - Pain [Recovering/Resolving]
  - Urinary tract infection [Unknown]
  - Abdominal pain [Unknown]
  - Limb injury [Unknown]
  - Nail bed bleeding [Unknown]

NARRATIVE: CASE EVENT DATE: 20250601
